FAERS Safety Report 5222910-8 (Version None)
Quarter: 2007Q1

REPORT INFORMATION
  Report Type: 
  Country: None (occurrence: None)
  Receive Date: 20070123
  Receipt Date: 20070115
  Transmission Date: 20070707
  Serious: Yes (Hospitalization, Other)
  Sender: FDA-Public Use
  Company Number: FRWYE199217JAN07

PATIENT
  Age: 26 Year
  Sex: Female

DRUGS (3)
  1. EFFEXOR [Suspect]
     Dosage: OVERDOSE AMOUNT: 5500 MG ORAL
     Route: 048
     Dates: start: 20050401, end: 20050401
  2. TETRAZEPAM (TETRAZEPAM, , 0) [Suspect]
     Dosage: OVERDOSE AMOUNT: 1 G ORAL
     Route: 048
     Dates: start: 20050401, end: 20050401
  3. ZOPICLONE (ZOPICLONE, , 0) [Suspect]
     Dosage: OVERDOSE AMOUNT: 210 MG ORAL
     Route: 048
     Dates: start: 20050401, end: 20050401

REACTIONS (7)
  - BLOOD LACTIC ACID INCREASED [None]
  - BLOOD POTASSIUM DECREASED [None]
  - COMA [None]
  - CONVULSION [None]
  - CYANOSIS [None]
  - OVERDOSE [None]
  - RHABDOMYOLYSIS [None]
